FAERS Safety Report 13010125 (Version 1)
Quarter: 2016Q4

REPORT INFORMATION
  Report Type: Not Available
  Country: FR (occurrence: FR)
  Receive Date: 20161208
  Receipt Date: 20161208
  Transmission Date: 20170207
  Serious: Yes (Hospitalization)
  Sender: FDA-Public Use
  Company Number: FR-MUNDIPHARMA DS AND PHARMACOVIGILANCE-GBR-2016-0042180

PATIENT
  Age: 96 Year
  Sex: Female

DRUGS (8)
  1. OXYCONTIN [Suspect]
     Active Substance: OXYCODONE HYDROCHLORIDE
     Indication: BACK PAIN
     Dosage: 2 DF, DAILY [STRENGTH 5 MG]
     Route: 048
     Dates: start: 20160526, end: 20160602
  2. AMLOR [Concomitant]
     Active Substance: AMLODIPINE BESYLATE
  3. CERIS [Concomitant]
     Active Substance: TROSPIUM CHLORIDE
  4. CALCIDOSE                          /00751519/ [Concomitant]
     Active Substance: CALCIUM CARBONATE\CHOLECALCIFEROL
  5. LYRICA [Suspect]
     Active Substance: PREGABALIN
     Indication: BACK PAIN
     Dosage: 25 MG, TID
     Route: 048
     Dates: start: 20160526, end: 20160610
  6. OXYNORMORO [Concomitant]
     Active Substance: OXYCODONE
     Indication: BACK PAIN
     Dosage: 5 MG, PRN
     Dates: start: 20160513
  7. LEVOTHYROX [Concomitant]
     Active Substance: LEVOTHYROXINE
  8. DEROXAT [Concomitant]
     Active Substance: PAROXETINE HYDROCHLORIDE

REACTIONS (2)
  - Delirium [Recovered/Resolved]
  - Hallucinations, mixed [Recovered/Resolved]

NARRATIVE: CASE EVENT DATE: 20160602
